FAERS Safety Report 8965691 (Version 1)
Quarter: 2012Q4

REPORT INFORMATION
  Report Type: Spontaneous
  Country: US (occurrence: None)
  Receive Date: 20121206
  Receipt Date: 20121206
  Transmission Date: 20130627
  Serious: Yes (Other)
  Sender: FDA-Public Use
  Company Number: 001412570A

PATIENT
  Age: 34 Year
  Sex: Female

DRUGS (4)
  1. PROACTIV REPAIRING TREATMENT [Suspect]
     Indication: ACNE
     Dosage: Dermal
     Dates: start: 20120317, end: 20120318
  2. PROACTIV RENEWING CLEANSER [Suspect]
     Indication: ACNE
     Dosage: Dermal
     Dates: start: 20120317, end: 20120318
  3. PROACTIV REFINING MASK [Suspect]
     Indication: ACNE
     Dosage: dermal
     Dates: start: 20120317, end: 20120318
  4. ALBUTEROL [Concomitant]

REACTIONS (4)
  - Paraesthesia [None]
  - Erythema [None]
  - Swelling face [None]
  - Hypersensitivity [None]
